FAERS Safety Report 7051004-4 (Version None)
Quarter: 2010Q4

REPORT INFORMATION
  Report Type: 
  Country: None (occurrence: None)
  Receive Date: 20101019
  Receipt Date: 20101007
  Transmission Date: 20110411
  Serious: Yes (Hospitalization)
  Sender: FDA-Public Use
  Company Number: GB-ELI_LILLY_AND_COMPANY-GB201010001422

PATIENT
  Age: 53 Year
  Sex: Female

DRUGS (6)
  1. BYETTA [Suspect]
     Indication: DIABETES MELLITUS INADEQUATE CONTROL
     Dosage: 5 UG, 2/D
     Route: 058
     Dates: start: 20100801
  2. GLICLAZIDE [Concomitant]
  3. LOFEPRAMINE HYDROCHLORIDE [Concomitant]
  4. METHADONE [Concomitant]
  5. RANITIDINE [Concomitant]
  6. ROSIGLITAZONE [Concomitant]

REACTIONS (1)
  - INJECTION SITE CELLULITIS [None]
